FAERS Safety Report 9015788 (Version 3)
Quarter: 2013Q1

REPORT INFORMATION
  Report Type: Report from Study
  Country: AU (occurrence: AU)
  Receive Date: 20130116
  Receipt Date: 20130311
  Transmission Date: 20140127
  Serious: Yes (Hospitalization, Other)
  Sender: FDA-Public Use
  Company Number: AU-ROCHE-1179287

PATIENT
  Sex: Female

DRUGS (2)
  1. TOCILIZUMAB [Suspect]
     Indication: RHEUMATOID ARTHRITIS
     Route: 042
     Dates: start: 20111024
  2. TOCILIZUMAB [Suspect]
     Route: 042
     Dates: start: 20110520

REACTIONS (3)
  - Joint effusion [Recovered/Resolved]
  - Weight increased [Unknown]
  - Musculoskeletal pain [Unknown]
